FAERS Safety Report 7516597-9 (Version None)
Quarter: 2011Q2

REPORT INFORMATION
  Report Type: 
  Country: None (occurrence: None)
  Receive Date: 20110523
  Receipt Date: 20110511
  Transmission Date: 20111010
  Serious: Yes (Death)
  Sender: FDA-Public Use
  Company Number: JPI-P-014804

PATIENT
  Age: 46 Year
  Sex: Male

DRUGS (4)
  1. XYREM [Suspect]
     Indication: PRODUCT USED FOR UNKNOWN INDICATION
     Dosage: 6 GM (3 GM,2 IN 1 D), ORAL; 9 GM (4.5GM,2 IN 1 D), ORAL;10 GM (5 GM,2 IN 1 D), ORAL; 12 GM (6 GM,2 I
     Route: 048
     Dates: start: 20060104, end: 20060301
  2. XYREM [Suspect]
     Indication: PRODUCT USED FOR UNKNOWN INDICATION
     Dosage: 6 GM (3 GM,2 IN 1 D), ORAL; 9 GM (4.5GM,2 IN 1 D), ORAL;10 GM (5 GM,2 IN 1 D), ORAL; 12 GM (6 GM,2 I
     Route: 048
     Dates: start: 20040719, end: 20040804
  3. XYREM [Suspect]
     Indication: PRODUCT USED FOR UNKNOWN INDICATION
     Dosage: 6 GM (3 GM,2 IN 1 D), ORAL; 9 GM (4.5GM,2 IN 1 D), ORAL;10 GM (5 GM,2 IN 1 D), ORAL; 12 GM (6 GM,2 I
     Route: 048
     Dates: start: 20050316, end: 20060103
  4. XYREM [Suspect]
     Indication: PRODUCT USED FOR UNKNOWN INDICATION
     Dosage: 6 GM (3 GM,2 IN 1 D), ORAL; 9 GM (4.5GM,2 IN 1 D), ORAL;10 GM (5 GM,2 IN 1 D), ORAL; 12 GM (6 GM,2 I
     Route: 048
     Dates: start: 20040805, end: 20050315

REACTIONS (1)
  - DEATH [None]
